FAERS Safety Report 19911535 (Version 4)
Quarter: 2023Q2

REPORT INFORMATION
  Report Type: Spontaneous
  Country: US (occurrence: US)
  Receive Date: 20211004
  Receipt Date: 20230615
  Transmission Date: 20230721
  Serious: No
  Sender: FDA-Public Use
  Company Number: US-BRISTOL-MYERS SQUIBB COMPANY-BMS-2021-053055

PATIENT
  Age: 69 Year
  Sex: Male
  Weight: 85.714 kg

DRUGS (7)
  1. ELIQUIS [Suspect]
     Active Substance: APIXABAN
     Indication: Pulmonary embolism
     Dates: start: 2014
  2. ELIQUIS [Suspect]
     Active Substance: APIXABAN
     Indication: Thrombosis prophylaxis
     Dates: end: 2021
  3. ELIQUIS [Suspect]
     Active Substance: APIXABAN
     Dates: start: 2021
  4. PREDNISONE [Concomitant]
     Active Substance: PREDNISONE
     Indication: Product used for unknown indication
  5. PFIZER-BIONTECH COVID-19 VACCINE [Concomitant]
     Active Substance: TOZINAMERAN
     Indication: COVID-19 immunisation
     Dosage: ROUTE OF ADMINISTRATION: INTRAMUSCULAR (RIGHT ARM SHOULDER)
     Route: 030
     Dates: start: 20210304
  6. PFIZER-BIONTECH COVID-19 VACCINE [Concomitant]
     Active Substance: TOZINAMERAN
     Dosage: ROUTE OF ADMINISTRATION: INTRAMUSCULAR (LEFT ARM SHOULDER)
     Route: 030
     Dates: start: 20210324
  7. PLAVIX [Concomitant]
     Active Substance: CLOPIDOGREL BISULFATE
     Indication: Stent placement

REACTIONS (1)
  - Intentional product use issue [Unknown]
